FAERS Safety Report 25013771 (Version 1)
Quarter: 2025Q1

REPORT INFORMATION
  Report Type: Spontaneous
  Country: US (occurrence: US)
  Receive Date: 20250226
  Receipt Date: 20250226
  Transmission Date: 20250408
  Serious: No
  Sender: UCB
  Company Number: US-UCBSA-2024062013

PATIENT

DRUGS (2)
  1. KEPPRA [Suspect]
     Active Substance: LEVETIRACETAM
     Indication: Craniocerebral injury
  2. KEPPRA [Suspect]
     Active Substance: LEVETIRACETAM
     Indication: Off label use

REACTIONS (3)
  - Irritability [Unknown]
  - Aggression [Unknown]
  - Off label use [Unknown]
